FAERS Safety Report 13176940 (Version 1)
Quarter: 2017Q1

REPORT INFORMATION
  Report Type: Spontaneous
  Country: US (occurrence: US)
  Receive Date: 20170201
  Receipt Date: 20170201
  Transmission Date: 20170428
  Serious: No
  Sender: FDA-Public Use
  Company Number: US-SHIRE-US201701923

PATIENT
  Sex: Female
  Weight: 95.24 kg

DRUGS (1)
  1. PENTASA [Suspect]
     Active Substance: MESALAMINE
     Indication: CROHN^S DISEASE
     Dosage: 500 MG (4 CAPSULES), 2X/DAY:BID
     Route: 048

REACTIONS (1)
  - Product use issue [Not Recovered/Not Resolved]
